FAERS Safety Report 5389755-X (Version None)
Quarter: 2007Q3

REPORT INFORMATION
  Report Type: 
  Country: None (occurrence: None)
  Receive Date: 20070717
  Receipt Date: 20070626
  Transmission Date: 20080115
  Serious: Yes (Life-Threatening, Hospitalization)
  Sender: FDA-Public Use
  Company Number: JP-GENENTECH-242893

PATIENT
  Age: 63 Year
  Sex: Male

DRUGS (9)
  1. MABTHERA [Suspect]
     Indication: B-CELL LYMPHOMA
     Dosage: 560 MG, UNK
     Dates: start: 20041029
  2. PRIDOL (UNK INGREDIENTS) [Suspect]
     Indication: HISTIOCYTOSIS HAEMATOPHAGIC
     Dosage: 500 MG, UNK
     Route: 042
     Dates: start: 20041025
  3. PRIDOL (UNK INGREDIENTS) [Suspect]
     Dosage: 2500 MG, UNK
     Route: 042
     Dates: start: 20041028
  4. PRIDOL (UNK INGREDIENTS) [Suspect]
     Dosage: 125 MG, UNK
     Route: 042
     Dates: start: 20041030
  5. NEORAL [Concomitant]
     Indication: IMMUNOSUPPRESSION
     Dosage: 100 MG, UNK
     Route: 048
     Dates: start: 20041028
  6. CYCLOPHOSPHAMIDE [Concomitant]
     Indication: DRUG USE FOR UNKNOWN INDICATION
     Dates: start: 20041101
  7. DOXORUBICIN HCL [Concomitant]
     Indication: DRUG USE FOR UNKNOWN INDICATION
     Dates: start: 20041101
  8. VINCRISTINE [Concomitant]
     Indication: DRUG USE FOR UNKNOWN INDICATION
     Dates: start: 20041101
  9. PREDNISONE [Concomitant]
     Indication: DRUG USE FOR UNKNOWN INDICATION
     Dates: start: 20041101

REACTIONS (1)
  - GASTROINTESTINAL HAEMORRHAGE [None]
